FAERS Safety Report 22069143 (Version 6)
Quarter: 2024Q2

REPORT INFORMATION
  Report Type: Other
  Country: CA (occurrence: None)
  Receive Date: 20230307
  Receipt Date: 20240521
  Transmission Date: 20240716
  Serious: No
  Sender: FDA-Public Use
  Company Number: CA-ROCHE-3301757

PATIENT
  Age: 43 Year
  Sex: Male

DRUGS (4)
  1. OCREVUS [Suspect]
     Active Substance: OCRELIZUMAB
     Indication: Relapsing-remitting multiple sclerosis
     Dosage: 300 MG AT DAY 0 AND 14, THEN 600 MG EVERY 6 MONTH
     Route: 042
     Dates: start: 20200512
  2. PROZAC [Concomitant]
     Active Substance: FLUOXETINE HYDROCHLORIDE
  3. CONCERTA [Concomitant]
     Active Substance: METHYLPHENIDATE HYDROCHLORIDE
  4. CLONAZEPAM [Concomitant]
     Active Substance: CLONAZEPAM

REACTIONS (12)
  - Nasopharyngitis [Unknown]
  - Diarrhoea [Recovered/Resolved]
  - Tympanic membrane perforation [Unknown]
  - Dyspnoea [Recovering/Resolving]
  - Intervertebral disc protrusion [Unknown]
  - Respiratory syncytial virus infection [Recovering/Resolving]
  - Hypersomnia [Unknown]
  - Illness [Unknown]
  - Hypoaesthesia [Recovered/Resolved]
  - Deafness unilateral [Not Recovered/Not Resolved]
  - Fatigue [Not Recovered/Not Resolved]
  - Gingival bleeding [Not Recovered/Not Resolved]

NARRATIVE: CASE EVENT DATE: 20230227
